FAERS Safety Report 9395924 (Version 1)
Quarter: 2013Q3

REPORT INFORMATION
  Report Type: Spontaneous
  Country: NL (occurrence: None)
  Receive Date: 20130708
  Receipt Date: 20130708
  Transmission Date: 20140515
  Serious: Yes (Other)
  Sender: FDA-Public Use
  Company Number: AUR-APL-2013-05727

PATIENT
  Age: 7 Decade
  Sex: Female

DRUGS (8)
  1. CLARITHROMYCIN [Suspect]
     Indication: UPPER RESPIRATORY TRACT INFECTION
     Dosage: 1000 (500 MG, 2 IN 1 D)
  2. METOPROLOL (METOPROLOL) [Concomitant]
  3. NOSCAPINE (NOSCAPINE) [Concomitant]
  4. PAROXETINE (PAROXETINE) [Concomitant]
  5. ESOMEPRAZOLE (ESOMEPRAZOLE) [Concomitant]
  6. HYDROCHLOROTHIAZIDE (HYDROCHLOROTHIAZIDE) [Concomitant]
  7. LORMETAZEPAM (LORMETAZEPAM) [Concomitant]
  8. GLICLAZIDE (GLICLAZIDE) [Concomitant]

REACTIONS (1)
  - Angioedema [None]
